FAERS Safety Report 8840703 (Version 1)
Quarter: 2012Q4

REPORT INFORMATION
  Report Type: 
  Country: US (occurrence: US)
  Receive Date: 20121015
  Receipt Date: 20121015
  Transmission Date: 20130627
  Serious: Yes (Other)
  Sender: FDA-Public Use
  Company Number: US-ROCHE-1125374

PATIENT
  Sex: Male
  Weight: 48.3 kg

DRUGS (8)
  1. NUTROPIN [Suspect]
     Indication: NEPHROTIC SYNDROME
     Route: 058
     Dates: start: 19940610
  2. NUTROPIN [Suspect]
     Indication: BODY HEIGHT BELOW NORMAL
  3. PREDNISONE [Concomitant]
     Route: 065
  4. PREDNISONE [Concomitant]
     Dosage: 50 or 60 mg
     Route: 065
  5. FK-506 [Concomitant]
     Route: 065
  6. DAPSONE [Concomitant]
     Route: 065
  7. TESTOSTERONE [Concomitant]
     Route: 065
     Dates: start: 19940920
  8. HUMATROPE [Concomitant]
     Dosage: 7 days per week
     Route: 058
     Dates: start: 19930205

REACTIONS (2)
  - Proteinuria [Unknown]
  - Rash maculo-papular [Unknown]
